FAERS Safety Report 6760151-3 (Version None)
Quarter: 2010Q2

REPORT INFORMATION
  Report Type: 
  Country: None (occurrence: None)
  Receive Date: 20100608
  Receipt Date: 20100601
  Transmission Date: 20101027
  Serious: Yes (Other)
  Sender: FDA-Public Use
  Company Number: FR-SANOFI-AVENTIS-2010SA031487

PATIENT
  Age: 79 Year
  Sex: Male

DRUGS (4)
  1. LOVENOX [Suspect]
     Indication: DEEP VEIN THROMBOSIS
     Route: 058
     Dates: start: 20100116, end: 20100120
  2. LOVENOX [Suspect]
     Indication: PULMONARY EMBOLISM
     Route: 058
     Dates: start: 20100116, end: 20100120
  3. PREVISCAN [Concomitant]
     Indication: DEEP VEIN THROMBOSIS
     Dosage: STARTED BETWEEN 16 TO 19-JAN-2010
     Route: 048
     Dates: start: 20100101
  4. PREVISCAN [Concomitant]
     Indication: PULMONARY EMBOLISM
     Dosage: STARTED BETWEEN 16 TO 19-JAN-2010
     Route: 048
     Dates: start: 20100101

REACTIONS (1)
  - TRANSAMINASES INCREASED [None]
